FAERS Safety Report 17901070 (Version 1)
Quarter: 2020Q2

REPORT INFORMATION
  Report Type: Spontaneous
  Country: US (occurrence: US)
  Receive Date: 20200615
  Receipt Date: 20200615
  Transmission Date: 20200714
  Serious: Yes (Hospitalization)
  Sender: FDA-Public Use
  Company Number: None

PATIENT
  Age: 66 Year
  Sex: Male
  Weight: 92 kg

DRUGS (2)
  1. APIXABAN (APIXABAN 5MG TAB) [Suspect]
     Active Substance: APIXABAN
     Indication: ATRIAL FIBRILLATION
     Route: 048
     Dates: start: 20170127
  2. ASPIRIN (ASPIRIN 81MG TAB, EC) [Suspect]
     Active Substance: ASPIRIN
     Route: 048
     Dates: start: 20091217

REACTIONS (6)
  - Large intestine polyp [None]
  - Wound secretion [None]
  - Gastrointestinal haemorrhage [None]
  - Haemorrhoids [None]
  - Constipation [None]
  - Proctitis [None]

NARRATIVE: CASE EVENT DATE: 20200214
